FAERS Safety Report 9206492 (Version 2)
Quarter: 2013Q2

REPORT INFORMATION
  Report Type: Spontaneous
  Country: US (occurrence: US)
  Receive Date: 20130403
  Receipt Date: 20130502
  Transmission Date: 20140414
  Serious: Yes (Other)
  Sender: FDA-Public Use
  Company Number: US-PFIZER INC-2013105138

PATIENT
  Age: 58 Year
  Sex: Male
  Weight: 88.44 kg

DRUGS (9)
  1. LYRICA [Suspect]
     Dosage: UNK
     Route: 048
     Dates: start: 201105
  2. LYRICA [Suspect]
     Dosage: 100 MG, 3X/DAY
     Route: 048
     Dates: start: 20130325
  3. CYCLOBENZAPRINE [Concomitant]
     Dosage: 10 MG, 3X/DAY
     Route: 048
  4. PAROXETINE [Concomitant]
     Indication: DEPRESSION
     Dosage: 20 MG, 1X/DAY
  5. PANTOPRAZOLE [Concomitant]
     Dosage: 40 MG, 1X/DAY
  6. KLOR-CON M20 [Concomitant]
     Dosage: UNK, 1X/DAY
  7. MULTIVITAMINS [Concomitant]
     Dosage: UNK
  8. LASIX [Concomitant]
     Dosage: 40 MG, 1X/DAY
  9. OXYCODONE [Concomitant]
     Dosage: 5 MG, 2X/DAY

REACTIONS (8)
  - Epilepsy [Unknown]
  - Nervousness [Unknown]
  - Feeling abnormal [Unknown]
  - Tremor [Unknown]
  - Dyskinesia [Unknown]
  - Insomnia [Unknown]
  - Feeling abnormal [Unknown]
  - Muscle spasms [Unknown]
